FAERS Safety Report 8814228 (Version 2)
Quarter: 2013Q1

REPORT INFORMATION
  Report Type: Spontaneous
  Country: US (occurrence: US)
  Receive Date: 20120928
  Receipt Date: 20130124
  Transmission Date: 20140127
  Serious: Yes (Hospitalization)
  Sender: FDA-Public Use
  Company Number: US-BAYER-2012-100074

PATIENT
  Age: 29 Year
  Sex: Female
  Weight: 63 kg

DRUGS (1)
  1. YAZ [Suspect]

REACTIONS (3)
  - Intracranial venous sinus thrombosis [Recovered/Resolved]
  - Haemorrhage intracranial [Recovered/Resolved]
  - Cholecystitis acute [None]
